FAERS Safety Report 16020750 (Version 2)
Quarter: 2019Q1

REPORT INFORMATION
  Report Type: Spontaneous
  Country: GB (occurrence: GB)
  Receive Date: 20190301
  Receipt Date: 20190319
  Transmission Date: 20190418
  Serious: Yes (Hospitalization, Disabling, Other)
  Sender: FDA-Public Use
  Company Number: GB-ACCORD-109628

PATIENT
  Age: 27 Year
  Sex: Female
  Weight: 40 kg

DRUGS (13)
  1. OMEPRAZOLE. [Concomitant]
     Active Substance: OMEPRAZOLE
  2. PROMETHAZINE [Suspect]
     Active Substance: PROMETHAZINE\PROMETHAZINE HYDROCHLORIDE
     Indication: FIBROMYALGIA
     Route: 048
     Dates: start: 20180806, end: 20180807
  3. MIRTAZAPINE. [Suspect]
     Active Substance: MIRTAZAPINE
     Indication: FIBROMYALGIA
     Dosage: 30MG FOR ONE NIGHT,15 MG ON 22-AUG-2018
     Route: 048
  4. PROCHLORPERAZINE. [Concomitant]
     Active Substance: PROCHLORPERAZINE
  5. ZOLPIDEM [Concomitant]
     Active Substance: ZOLPIDEM\ZOLPIDEM TARTRATE
  6. ZOPICLONE [Concomitant]
     Active Substance: ZOPICLONE
  7. DIAZEPAM. [Concomitant]
     Active Substance: DIAZEPAM
  8. AMITRIPTYLINE [Suspect]
     Active Substance: AMITRIPTYLINE
     Indication: FIBROMYALGIA
     Dosage: ALSO 40 MG ,10MG INCREASED TO 40MG OVER THAT TIME
     Route: 048
     Dates: start: 20180628
  9. CYCLIZINE [Concomitant]
     Active Substance: CYCLIZINE
  10. DICLOFENAC [Concomitant]
     Active Substance: DICLOFENAC
  11. SALBUTAMOL [Concomitant]
     Active Substance: ALBUTEROL
  12. CODEINE PHOSPHATE/PARACETAMOL [Concomitant]
  13. METOCLOPRAMIDE. [Concomitant]
     Active Substance: METOCLOPRAMIDE

REACTIONS (8)
  - Insomnia [Unknown]
  - Hypoaesthesia [Recovered/Resolved]
  - Palpitations [Not Recovered/Not Resolved]
  - Pruritus generalised [Recovered/Resolved]
  - Dysphagia [Recovered/Resolved]
  - Dyspnoea [Recovering/Resolving]
  - Paralysis [Recovered/Resolved]
  - Restless legs syndrome [Recovering/Resolving]
